FAERS Safety Report 14833330 (Version 1)
Quarter: 2018Q2

REPORT INFORMATION
  Report Type: Spontaneous
  Country: US (occurrence: US)
  Receive Date: 20180411
  Receipt Date: 20180411
  Transmission Date: 20180711
  Serious: Yes (Hospitalization, Disabling, Other)
  Sender: FDA-Public Use
  Company Number: None

PATIENT
  Age: 12 Year
  Sex: Female
  Weight: 78.75 kg

DRUGS (1)
  1. MIRALAX [Suspect]
     Active Substance: POLYETHYLENE GLYCOL 3350

REACTIONS (6)
  - Movement disorder [None]
  - Fatigue [None]
  - Hypoaesthesia [None]
  - Dyspnoea [None]
  - Haemoptysis [None]
  - Intervertebral disc disorder [None]

NARRATIVE: CASE EVENT DATE: 20170410
